FAERS Safety Report 5180180-3 (Version None)
Quarter: 2006Q4

REPORT INFORMATION
  Report Type: 
  Country: None (occurrence: None)
  Receive Date: 20061212
  Receipt Date: 20061204
  Transmission Date: 20070319
  Serious: Yes (Other)
  Sender: FDA-Public Use
  Company Number: GXKR2006GB07872

PATIENT
  Age: 6 Year
  Sex: Male
  Weight: 21.7 kg

DRUGS (2)
  1. LORATADINE [Suspect]
     Indication: SEASONAL ALLERGY
     Dosage: 1 DF, ORAL
     Route: 048
     Dates: start: 20060501, end: 20060501
  2. CETIRIZINE (NGX) (CETIRIZINE) UNKNOWN [Suspect]
     Indication: SEASONAL ALLERGY
     Dosage: 1 DF, ORAL
     Route: 048
     Dates: start: 20060501, end: 20060501

REACTIONS (4)
  - AGGRESSION [None]
  - DEPRESSION [None]
  - INTENTIONAL SELF-INJURY [None]
  - MANIA [None]
